FAERS Safety Report 9555372 (Version 1)
Quarter: 2013Q3

REPORT INFORMATION
  Report Type: Spontaneous
  Country: GB (occurrence: GB)
  Receive Date: 20130926
  Receipt Date: 20130926
  Transmission Date: 20140515
  Serious: Yes (Other)
  Sender: FDA-Public Use
  Company Number: GB-BAYER-2013-114694

PATIENT
  Age: 51 Year
  Sex: Male

DRUGS (1)
  1. BETAFERON [Suspect]
     Dosage: 250 ?G, QOD
     Route: 058

REACTIONS (2)
  - Bedridden [None]
  - Influenza [None]
